FAERS Safety Report 23752777 (Version 4)
Quarter: 2024Q3

REPORT INFORMATION
  Report Type: Spontaneous
  Country: GB (occurrence: GB)
  Receive Date: 20240417
  Receipt Date: 20240814
  Transmission Date: 20241017
  Serious: Yes (Hospitalization)
  Sender: GALDERMA
  Company Number: GB-GALDERMA-GB2024006115

PATIENT

DRUGS (1)
  1. BENZOYL PEROXIDE [Suspect]
     Active Substance: BENZOYL PEROXIDE
     Indication: Acne
     Dosage: 1 DOSAGE FORM, BID, APPLIED ON FACE, MINIMAL CREAM WAS USED
     Route: 061
     Dates: start: 20240329, end: 20240329

REACTIONS (7)
  - Skin bacterial infection [Recovering/Resolving]
  - Scab [Recovering/Resolving]
  - Skin weeping [Recovering/Resolving]
  - Application site burn [Recovering/Resolving]
  - Application site swelling [Recovering/Resolving]
  - Application site pain [Recovering/Resolving]
  - Dermatitis contact [Recovering/Resolving]

NARRATIVE: CASE EVENT DATE: 20240101
